FAERS Safety Report 7723856-3 (Version None)
Quarter: 2011Q3

REPORT INFORMATION
  Report Type: 
  Country: None (occurrence: None)
  Receive Date: 20110829
  Receipt Date: 20110818
  Transmission Date: 20111222
  Serious: Yes (Death)
  Sender: FDA-Public Use
  Company Number: JPI-P-016694

PATIENT
  Age: 72 Year
  Sex: Female
  Weight: 82.5547 kg

DRUGS (1)
  1. XYREM [Suspect]
     Indication: CATAPLEXY
     Dosage: 2.25 GM (2.25 GM, 1 IN 1 D), ORAL
     Route: 048
     Dates: start: 20110801, end: 20110801

REACTIONS (3)
  - CONFUSIONAL STATE [None]
  - DROWNING [None]
  - SOMNAMBULISM [None]
